FAERS Safety Report 9201972 (Version 1)
Quarter: 2013Q1

REPORT INFORMATION
  Report Type: Spontaneous
  Country: US (occurrence: None)
  Receive Date: 20130328
  Receipt Date: 20130328
  Transmission Date: 20140127
  Serious: Yes (Hospitalization, Other)
  Sender: FDA-Public Use
  Company Number: US-1197195

PATIENT
  Sex: Male

DRUGS (1)
  1. DUREZOL [Suspect]
     Indication: UVEITIS
     Dosage: (1 GTT QD OU OPHTHALMIC) CONTINUING?
     Dates: start: 201210

REACTIONS (3)
  - Cellulitis [None]
  - Vomiting [None]
  - Pyrexia [None]
